FAERS Safety Report 25955482 (Version 3)
Quarter: 2025Q4

REPORT INFORMATION
  Report Type: Report from Study
  Country: US (occurrence: US)
  Receive Date: 20251024
  Receipt Date: 20251124
  Transmission Date: 20260118
  Serious: Yes (Hospitalization)
  Sender: ABBVIE
  Company Number: US-ABBVIE-6512009

PATIENT
  Age: 70 Year
  Sex: Male
  Weight: 97 kg

DRUGS (2)
  1. SKYRIZI [Suspect]
     Active Substance: RISANKIZUMAB-RZAA
     Indication: Colitis
     Route: 042
     Dates: start: 20250922
  2. TYLENOL [Concomitant]
     Active Substance: ACETAMINOPHEN
     Indication: Respiratory disorder

REACTIONS (12)
  - Interstitial lung disease [Recovering/Resolving]
  - Chest discomfort [Recovering/Resolving]
  - Diarrhoea [Unknown]
  - Dyspnoea [Recovering/Resolving]
  - Seasonal allergy [Unknown]
  - Dysphonia [Unknown]
  - Abdominal pain [Unknown]
  - Wheezing [Unknown]
  - Chest pain [Unknown]
  - Throat tightness [Unknown]
  - Oxygen saturation decreased [Unknown]
  - Cough [Unknown]

NARRATIVE: CASE EVENT DATE: 20250101
